FAERS Safety Report 9003348 (Version 1)
Quarter: 2013Q1

REPORT INFORMATION
  Report Type: Spontaneous
  Country: US (occurrence: US)
  Receive Date: 20130108
  Receipt Date: 20130108
  Transmission Date: 20140127
  Serious: Yes (Other)
  Sender: FDA-Public Use
  Company Number: US-009507513-1301USA001976

PATIENT
  Age: 29 Year
  Sex: Female

DRUGS (6)
  1. SINGULAIR [Suspect]
     Route: 048
  2. ZANTAC [Suspect]
  3. HYDROXYZINE [Suspect]
     Indication: URTICARIA
  4. ALLEGRA [Suspect]
  5. NAPROXEN [Concomitant]
     Indication: BACK PAIN
     Route: 048
  6. DAYPRO [Concomitant]
     Route: 048

REACTIONS (6)
  - Vision blurred [Unknown]
  - Urticaria [Unknown]
  - Tri-iodothyronine increased [Unknown]
  - Thyroxine increased [Unknown]
  - Pruritus [Unknown]
  - Panic attack [Unknown]
